FAERS Safety Report 25413193 (Version 1)
Quarter: 2025Q2

REPORT INFORMATION
  Report Type: Spontaneous
  Country: HR (occurrence: HR)
  Receive Date: 20250609
  Receipt Date: 20250609
  Transmission Date: 20250716
  Serious: Yes (Hospitalization, Other)
  Sender: TEVA
  Company Number: None

PATIENT
  Age: 59 Year
  Sex: Male

DRUGS (15)
  1. SERTRALINE HYDROCHLORIDE [Suspect]
     Active Substance: SERTRALINE HYDROCHLORIDE
     Indication: Post-traumatic stress disorder
     Route: 048
     Dates: start: 2011
  2. ZOPICLONE [Suspect]
     Active Substance: ZOPICLONE
     Indication: Depression
     Route: 048
     Dates: start: 20250225
  3. OLANZAPINE [Suspect]
     Active Substance: OLANZAPINE
     Indication: Post-traumatic stress disorder
     Route: 048
     Dates: start: 2025
  4. MIDAZOLAM MALEATE [Suspect]
     Active Substance: MIDAZOLAM MALEATE
     Indication: Post-traumatic stress disorder
     Route: 048
     Dates: start: 2024
  5. ESCITALOPRAM OXALATE [Suspect]
     Active Substance: ESCITALOPRAM OXALATE
     Indication: Post-traumatic stress disorder
     Route: 048
     Dates: start: 2023
  6. RIVOTRIL [Suspect]
     Active Substance: CLONAZEPAM
     Indication: Psychotic disorder
     Route: 048
     Dates: start: 2025
  7. MIRTAZAPINE [Suspect]
     Active Substance: MIRTAZAPINE
     Indication: Personality change
     Route: 048
     Dates: start: 20250225
  8. OLANZAPINE [Suspect]
     Active Substance: OLANZAPINE
     Indication: Depression
     Route: 048
     Dates: start: 20250225
  9. NORMABEL [Suspect]
     Active Substance: DIAZEPAM
     Indication: Post-traumatic stress disorder
     Route: 048
     Dates: start: 2025
  10. ESCITALOPRAM OXALATE [Suspect]
     Active Substance: ESCITALOPRAM OXALATE
     Indication: Post-traumatic stress disorder
     Route: 048
     Dates: start: 2011
  11. FLURAZEPAM HYDROCHLORIDE [Suspect]
     Active Substance: FLURAZEPAM HYDROCHLORIDE
     Indication: Post-traumatic stress disorder
     Route: 048
     Dates: start: 2024
  12. FEVARIN [Suspect]
     Active Substance: FLUVOXAMINE MALEATE
     Indication: Post-traumatic stress disorder
     Route: 048
     Dates: start: 2024
  13. MIRTAZAPINE [Suspect]
     Active Substance: MIRTAZAPINE
     Indication: Post-traumatic stress disorder
     Route: 048
     Dates: start: 2013
  14. QUETIAPINE FUMARATE [Suspect]
     Active Substance: QUETIAPINE FUMARATE
     Indication: Post-traumatic stress disorder
     Route: 048
     Dates: start: 20250225
  15. XANAX [Suspect]
     Active Substance: ALPRAZOLAM
     Indication: Post-traumatic stress disorder
     Route: 048
     Dates: start: 2011

REACTIONS (49)
  - Suicidal ideation [Not Recovered/Not Resolved]
  - Insomnia [Unknown]
  - Depression [Not Recovered/Not Resolved]
  - Enuresis [Not Recovered/Not Resolved]
  - Asthma [Not Recovered/Not Resolved]
  - Gynaecomastia [Unknown]
  - Stiff tongue [Not Recovered/Not Resolved]
  - Libido decreased [Not Recovered/Not Resolved]
  - Back pain [Unknown]
  - Dyspnoea [Unknown]
  - Apnoea [Unknown]
  - Fear [Not Recovered/Not Resolved]
  - Nausea [Not Recovered/Not Resolved]
  - Dysphemia [Unknown]
  - Nervousness [Not Recovered/Not Resolved]
  - Headache [Unknown]
  - Vertigo [Not Recovered/Not Resolved]
  - Painful erection [Unknown]
  - Speech disorder [Not Recovered/Not Resolved]
  - Dysuria [Not Recovered/Not Resolved]
  - Angina pectoris [Not Recovered/Not Resolved]
  - Intentional self-injury [Not Recovered/Not Resolved]
  - Chest pain [Not Recovered/Not Resolved]
  - Somnambulism [Not Recovered/Not Resolved]
  - Hypoaesthesia [Unknown]
  - Slow speech [Not Recovered/Not Resolved]
  - Dizziness [Unknown]
  - Tinnitus [Not Recovered/Not Resolved]
  - Sleep apnoea syndrome [Not Recovered/Not Resolved]
  - Weight increased [Not Recovered/Not Resolved]
  - Face oedema [Unknown]
  - Repetitive speech [Unknown]
  - Fatigue [Unknown]
  - Deafness [Unknown]
  - Faeces hard [Not Recovered/Not Resolved]
  - Flashback [Not Recovered/Not Resolved]
  - Abdominal pain upper [Not Recovered/Not Resolved]
  - Stupor [Not Recovered/Not Resolved]
  - Aggression [Not Recovered/Not Resolved]
  - Respiratory rate decreased [Unknown]
  - Dry mouth [Not Recovered/Not Resolved]
  - Dyspnoea [Unknown]
  - Hypomania [Not Recovered/Not Resolved]
  - Claustrophobia [Not Recovered/Not Resolved]
  - Euphoric mood [Not Recovered/Not Resolved]
  - Restlessness [Unknown]
  - Memory impairment [Not Recovered/Not Resolved]
  - Panic attack [Unknown]
  - Nightmare [Not Recovered/Not Resolved]

NARRATIVE: CASE EVENT DATE: 19930101
